FAERS Safety Report 12050171 (Version 1)
Quarter: 2016Q1

REPORT INFORMATION
  Report Type: Spontaneous
  Country: US (occurrence: US)
  Receive Date: 20160208
  Receipt Date: 20160208
  Transmission Date: 20160526
  Serious: Yes (Other)
  Sender: FDA-Public Use
  Company Number: US-BAXALTA-2016BLT000596

PATIENT
  Age: 53 Year
  Sex: Male

DRUGS (1)
  1. ADVATE [Suspect]
     Active Substance: ANTIHEMOPHILIC FACTOR, HUMAN RECOMBINANT
     Indication: FACTOR VII DEFICIENCY
     Dosage: UNK, 2000 IU +/- 10%
     Route: 065

REACTIONS (1)
  - Haemarthrosis [Recovered/Resolved]
